FAERS Safety Report 17209918 (Version 2)
Quarter: 2020Q1

REPORT INFORMATION
  Report Type: Spontaneous
  Country: IT (occurrence: IT)
  Receive Date: 20191227
  Receipt Date: 20200123
  Transmission Date: 20200409
  Serious: Yes (Hospitalization, Other)
  Sender: FDA-Public Use
  Company Number: IT-JAZZ-2019-IT-017893

PATIENT
  Age: 25 Year
  Sex: Female

DRUGS (12)
  1. AMPHOTERICIN B. [Concomitant]
     Active Substance: AMPHOTERICIN B
     Indication: PROPHYLAXIS
     Dosage: 130 MG, QD
     Route: 042
     Dates: start: 20190702, end: 20190720
  2. ACICLOVIR [Concomitant]
     Active Substance: ACYCLOVIR
     Indication: ANTIVIRAL PROPHYLAXIS
     Dosage: 400 MG, BID
     Route: 048
     Dates: start: 20190612, end: 20190706
  3. VORICONAZOLE. [Concomitant]
     Active Substance: VORICONAZOLE
     Indication: PROPHYLAXIS
     Dosage: 200 MG, BID
     Route: 042
     Dates: start: 20190624, end: 20190702
  4. LINEZOLID. [Concomitant]
     Active Substance: LINEZOLID
     Indication: PNEUMONIA
     Dosage: 600 MG, BID
     Route: 042
     Dates: start: 20190708, end: 20190712
  5. MEROPENEM. [Concomitant]
     Active Substance: MEROPENEM
     Indication: PYREXIA
     Dosage: 2 G, TID
     Route: 042
     Dates: start: 20190629, end: 20190702
  6. GANCICLOVIR. [Concomitant]
     Active Substance: GANCICLOVIR
     Indication: HUMAN HERPESVIRUS 6 ENCEPHALITIS
     Dosage: 200 MG, BID
     Route: 042
     Dates: start: 20190712, end: 20190726
  7. DAPTOMYCIN. [Concomitant]
     Active Substance: DAPTOMYCIN
     Indication: PYREXIA
     Dosage: 350 MG, QD
     Route: 042
     Dates: start: 20190627, end: 20190707
  8. RIFAMPICIN [Concomitant]
     Active Substance: RIFAMPIN
     Indication: PNEUMONIA
     Dosage: 450 MG, UNK
     Route: 042
     Dates: start: 20190712, end: 20190716
  9. DEFITELIO [Suspect]
     Active Substance: DEFIBROTIDE SODIUM
     Indication: VENOOCCLUSIVE DISEASE
     Dosage: 6.25 MG/KG, QID
     Route: 042
     Dates: start: 20190702, end: 20190716
  10. FOSCARNET [Concomitant]
     Active Substance: FOSCARNET
     Indication: HUMAN HERPESVIRUS 6 ENCEPHALITIS
     Dosage: 4.5 G, BID
     Route: 042
     Dates: start: 20190706, end: 20190809
  11. LETERMOVIR [Concomitant]
     Active Substance: LETERMOVIR
     Indication: PROPHYLAXIS
     Dosage: 980 MG, QD
     Route: 048
     Dates: start: 20190619, end: 20190825
  12. VANCOMYCIN [Concomitant]
     Active Substance: VANCOMYCIN
     Indication: SEPSIS
     Dosage: 700 MG, BID
     Route: 042
     Dates: start: 20190707, end: 20190708

REACTIONS (4)
  - Intentional product use issue [Unknown]
  - Shock haemorrhagic [Recovered/Resolved]
  - Hepatic haematoma [Recovered/Resolved]
  - Peritoneal haemorrhage [Recovered/Resolved]

NARRATIVE: CASE EVENT DATE: 20190702
